FAERS Safety Report 8826754 (Version 1)
Quarter: 2012Q4

REPORT INFORMATION
  Report Type: 
  Country: CL (occurrence: CL)
  Receive Date: 20121007
  Receipt Date: 20121007
  Transmission Date: 20130627
  Serious: Yes (Congenital Anomaly, Other)
  Sender: FDA-Public Use
  Company Number: PHHY2012CL085679

PATIENT

DRUGS (3)
  1. TEGRETOL [Suspect]
     Indication: EPILEPSY
     Route: 064
  2. VALPROIC ACID [Suspect]
     Indication: EPILEPSY
     Route: 064
  3. CLOBAZAM [Suspect]
     Indication: EPILEPSY

REACTIONS (3)
  - Pulmonary artery stenosis [Unknown]
  - Congenital renal disorder [Unknown]
  - Foetal exposure during pregnancy [Unknown]
